FAERS Safety Report 10152694 (Version 2)
Quarter: 2014Q2

REPORT INFORMATION
  Report Type: Spontaneous
  Country: US (occurrence: US)
  Receive Date: 20140505
  Receipt Date: 20140527
  Transmission Date: 20141212
  Serious: Yes (Hospitalization)
  Sender: FDA-Public Use
  Company Number: US-BAYER-2014-064482

PATIENT
  Age: 22 Year
  Sex: Female
  Weight: 69.84 kg

DRUGS (6)
  1. MIRENA [Suspect]
     Indication: CONTRACEPTION
     Dosage: 20 MCG/24HR, CONT
     Route: 015
     Dates: start: 20120910, end: 20131001
  2. MIRENA [Suspect]
     Indication: MENORRHAGIA
  3. DULERA [Concomitant]
     Indication: ASTHMA
     Dosage: UNK
     Dates: start: 2010
  4. DAPAMAX [Concomitant]
     Dosage: UNK
     Dates: start: 2010
  5. SERTRALINE [Concomitant]
     Indication: DEPRESSION
     Dosage: UNK
     Dates: start: 2011
  6. PROTONIX [Concomitant]
     Indication: GASTROOESOPHAGEAL REFLUX DISEASE
     Dosage: UNK
     Dates: start: 2011

REACTIONS (12)
  - Device dislocation [None]
  - Injury [None]
  - Emotional distress [None]
  - Vulvovaginal pain [None]
  - Abdominal pain [None]
  - Abdominal pain lower [None]
  - Procedural pain [None]
  - Depression [None]
  - Device dislocation [None]
  - Vaginal haemorrhage [None]
  - Device issue [None]
  - Device physical property issue [None]
